FAERS Safety Report 20586228 (Version 1)
Quarter: 2022Q1

REPORT INFORMATION
  Report Type: Spontaneous
  Country: DE (occurrence: None)
  Receive Date: 20220313
  Receipt Date: 20220313
  Transmission Date: 20220424
  Serious: Yes (Hospitalization)
  Sender: FDA-Public Use
  Company Number: DE-ROCHE-3042592

PATIENT
  Age: 78 Year
  Sex: Female

DRUGS (4)
  1. ATEZOLIZUMAB [Suspect]
     Active Substance: ATEZOLIZUMAB
     Indication: Hepatocellular carcinoma
     Dosage: 9 CYCLES IN COMBINATION WITH BEVACIZUMAB
     Route: 041
     Dates: start: 202102, end: 202109
  2. ATEZOLIZUMAB [Suspect]
     Active Substance: ATEZOLIZUMAB
     Dosage: IN COMBINATION WITH BEVACIZUMAB
     Route: 042
     Dates: start: 202111, end: 202202
  3. BEVACIZUMAB [Suspect]
     Active Substance: BEVACIZUMAB
     Indication: Hepatocellular carcinoma
     Dosage: 9 CYCLES IN COMBINATION WITH ATEZOLIZUMAB
     Route: 065
     Dates: start: 202102, end: 202109
  4. BEVACIZUMAB [Suspect]
     Active Substance: BEVACIZUMAB
     Dosage: IN COMBINATION WITH ATEZOLIZUMAB
     Route: 065
     Dates: start: 202111, end: 202202

REACTIONS (4)
  - Myasthenia gravis [Unknown]
  - Muscular weakness [Unknown]
  - Deafness [Unknown]
  - Cystitis noninfective [Unknown]

NARRATIVE: CASE EVENT DATE: 20211001
